FAERS Safety Report 5487932-0 (Version None)
Quarter: 2007Q4

REPORT INFORMATION
  Report Type: 
  Country: None (occurrence: None)
  Receive Date: 20071012
  Receipt Date: 20071012
  Transmission Date: 20080405
  Serious: Yes (Life-Threatening, Hospitalization, Other)
  Sender: FDA-Public Use
  Company Number: None

PATIENT
  Age: 45 Year
  Sex: Female
  Weight: 58.9676 kg

DRUGS (1)
  1. CHANTIX [Suspect]
     Indication: SMOKING CESSATION THERAPY
     Dosage: .5 MG   2/DAY FOR 1 WEEK  PO;  1 MG  2/DAY FOR REMAINDE  PO
     Route: 048
     Dates: start: 20070316, end: 20070520

REACTIONS (1)
  - PULMONARY EMBOLISM [None]
